FAERS Safety Report 5950694-4 (Version None)
Quarter: 2008Q4

REPORT INFORMATION
  Report Type: 
  Country: None (occurrence: None)
  Receive Date: 20081112
  Receipt Date: 20081028
  Transmission Date: 20090506
  Serious: Yes (Life-Threatening)
  Sender: FDA-Public Use
  Company Number: TW-SANOFI-SYNTHELABO-A01200808057

PATIENT
  Age: 44 Year
  Sex: Female

DRUGS (3)
  1. FLUOROURACIL [Concomitant]
     Indication: COLON CANCER
     Dosage: UNK
     Route: 041
  2. OXALIPLATIN [Suspect]
     Indication: COLON CANCER
     Dosage: UNK
     Route: 041
     Dates: start: 20070224, end: 20070224
  3. FOLINIC ACID [Concomitant]
     Indication: COLON CANCER
     Dosage: UNK
     Route: 041

REACTIONS (7)
  - BRADYCARDIA [None]
  - DIZZINESS [None]
  - HYPOTENSION [None]
  - LONG QT SYNDROME [None]
  - NEUTROPENIA [None]
  - PALPITATIONS [None]
  - SYNCOPE [None]
